FAERS Safety Report 10770688 (Version 3)
Quarter: 2015Q2

REPORT INFORMATION
  Report Type: Report from Study
  Country: DE (occurrence: DE)
  Receive Date: 20150206
  Receipt Date: 20150515
  Transmission Date: 20150821
  Serious: Yes (Death, Hospitalization)
  Sender: FDA-Public Use
  Company Number: DE-ABBVIE-14P-062-1322222-00

PATIENT
  Sex: Male

DRUGS (2)
  1. DUODOPA [Suspect]
     Active Substance: CARBIDOPA\LEVODOPA
     Indication: PARKINSON^S DISEASE
     Route: 050
     Dates: start: 201408
  2. DUODOPA [Suspect]
     Active Substance: CARBIDOPA\LEVODOPA
     Dosage: MD 7.5 ML CRD 4.4 ML/H ED 2.1 ML
     Route: 050
     Dates: start: 20140811

REACTIONS (5)
  - Cardiac failure [Fatal]
  - Sepsis [Fatal]
  - Drug effect variable [Unknown]
  - Cardiac disorder [Not Recovered/Not Resolved]
  - Akinesia [Unknown]

NARRATIVE: CASE EVENT DATE: 2015
